FAERS Safety Report 15508287 (Version 2)
Quarter: 2018Q4

REPORT INFORMATION
  Report Type: Spontaneous
  Country: SE (occurrence: SE)
  Receive Date: 20181016
  Receipt Date: 20181113
  Transmission Date: 20190205
  Serious: Yes (Other)
  Sender: FDA-Public Use
  Company Number: SE-SA-2018SA281589

PATIENT
  Sex: Male

DRUGS (10)
  1. NOVORAPID [Suspect]
     Active Substance: INSULIN ASPART
  2. ROSUVASTATIN. [Concomitant]
     Active Substance: ROSUVASTATIN
     Dosage: UNK
     Route: 065
     Dates: start: 20180810
  3. ATORVASTATIN [Concomitant]
     Active Substance: ATORVASTATIN
     Route: 065
  4. CANDESARTAN COMP. [Concomitant]
     Dosage: UNK
     Route: 065
     Dates: start: 20180810
  5. AMLODIPIN [AMLODIPINE] [Concomitant]
     Dosage: UNK
     Route: 065
     Dates: start: 20180810
  6. HUMALOG [Concomitant]
     Active Substance: INSULIN LISPRO
     Route: 065
  7. FELODIPIN [Concomitant]
     Active Substance: FELODIPINE
     Route: 065
  8. TOUJEO [Suspect]
     Active Substance: INSULIN GLARGINE
     Dosage: 65 IU, QD
     Dates: start: 20180810, end: 20180921
  9. TOUJEO [Suspect]
     Active Substance: INSULIN GLARGINE
     Dosage: 50 U, UNK
  10. ENALAPRIL [Concomitant]
     Active Substance: ENALAPRIL
     Route: 065

REACTIONS (3)
  - Loss of consciousness [Recovered/Resolved]
  - Face injury [Recovered/Resolved]
  - Hypoglycaemia [Recovered/Resolved]

NARRATIVE: CASE EVENT DATE: 20180921
